FAERS Safety Report 7364917-0 (Version None)
Quarter: 2011Q1

REPORT INFORMATION
  Report Type: 
  Country: None (occurrence: None)
  Receive Date: 20110225
  Receipt Date: 20101110
  Transmission Date: 20110831
  Serious: No
  Sender: FDA-Public Use
  Company Number: 318389

PATIENT
  Age: 74 Year
  Sex: Male

DRUGS (1)
  1. VICTOZA [Suspect]
     Indication: TYPE 2 DIABETES MELLITUS
     Dosage: SUBCUTANEOUS
     Route: 058

REACTIONS (5)
  - ASTHENIA [None]
  - DIARRHOEA [None]
  - BLOOD GLUCOSE INCREASED [None]
  - DIZZINESS [None]
  - NAUSEA [None]
